FAERS Safety Report 7419386-9 (Version None)
Quarter: 2011Q2

REPORT INFORMATION
  Report Type: 
  Country: None (occurrence: None)
  Receive Date: 20110415
  Receipt Date: 20110405
  Transmission Date: 20111010
  Serious: Yes (Hospitalization, Other)
  Sender: FDA-Public Use
  Company Number: US-BAYER-2011-030230

PATIENT
  Sex: Male

DRUGS (1)
  1. CIPRO [Suspect]

REACTIONS (2)
  - TENDON RUPTURE [None]
  - TENDONITIS [None]
